FAERS Safety Report 10135906 (Version 3)
Quarter: 2014Q3

REPORT INFORMATION
  Report Type: Report from Study
  Country: DE (occurrence: DE)
  Receive Date: 20140429
  Receipt Date: 20140804
  Transmission Date: 20150326
  Serious: Yes (Other)
  Sender: FDA-Public Use
  Company Number: DE-BEH-2014041928

PATIENT
  Age: 78 Year
  Sex: Female
  Weight: 95 kg

DRUGS (16)
  1. PANTOZOL [Concomitant]
     Active Substance: PANTOPRAZOLE SODIUM
  2. PRIVIGEN [Suspect]
     Active Substance: HUMAN IMMUNOGLOBULIN G
     Dates: start: 20131205, end: 20131205
  3. VALSARTE [Concomitant]
  4. PREDNISOLON [Concomitant]
     Active Substance: PREDNISOLONE
  5. IBUPROFEN. [Concomitant]
     Active Substance: IBUPROFEN
     Dosage: 1-0-1
  6. PRIVIGEN [Suspect]
     Active Substance: HUMAN IMMUNOGLOBULIN G
     Indication: CHRONIC LYMPHOCYTIC LEUKAEMIA
     Dosage: INFUSION RATE 0.75 - 6.0 ML/MIN
     Route: 042
     Dates: start: 20140106, end: 20140106
  7. AMLODIPINE [Concomitant]
     Active Substance: AMLODIPINE BESYLATE
     Dosage: 1-0-0
  8. METOPROLOL [Concomitant]
     Active Substance: METOPROLOL
     Dosage: 1-0-1
  9. VALSARTAN. [Concomitant]
     Active Substance: VALSARTAN
     Dosage: 1-0-0
  10. PREDSILON [Concomitant]
     Dosage: 1-0-0
  11. CERTOPARIN [Concomitant]
  12. PRIVIGEN [Suspect]
     Active Substance: HUMAN IMMUNOGLOBULIN G
     Dates: start: 20131105, end: 20131105
  13. PRIVIGEN [Suspect]
     Active Substance: HUMAN IMMUNOGLOBULIN G
     Dosage: INFUSION RATE: 0.75 ML - 6.0 ML/MIN
     Route: 042
     Dates: start: 20140106, end: 20140106
  14. PRIVIGEN [Suspect]
     Active Substance: HUMAN IMMUNOGLOBULIN G
     Indication: SECONDARY IMMUNODEFICIENCY
     Dates: start: 20131205, end: 20131205
  15. PRIVIGEN [Suspect]
     Active Substance: HUMAN IMMUNOGLOBULIN G
     Dates: start: 20131105, end: 20131105
  16. TORASEMIDE [Concomitant]
     Active Substance: TORSEMIDE

REACTIONS (1)
  - Deep vein thrombosis [Unknown]

NARRATIVE: CASE EVENT DATE: 20140131
